FAERS Safety Report 4303071-6 (Version None)
Quarter: 2004Q1

REPORT INFORMATION
  Report Type: 
  Country: None (occurrence: None)
  Receive Date: 20040126
  Receipt Date: 20031017
  Transmission Date: 20041129
  Serious: No
  Sender: FDA-Public Use
  Company Number: USA031050234

PATIENT
  Sex: Male
  Weight: 39 kg

DRUGS (2)
  1. STRATTERA [Suspect]
     Indication: ATTENTION DEFICIT/HYPERACTIVITY DISORDER
     Dosage: 60 MG/DAY
     Dates: start: 20030918
  2. CONCERTA (METHYLPHENIDATE HYDRCHLORIDE) [Concomitant]

REACTIONS (3)
  - NAUSEA [None]
  - PRESCRIBED OVERDOSE [None]
  - VOMITING [None]
